FAERS Safety Report 9693597 (Version 3)
Quarter: 2014Q1

REPORT INFORMATION
  Report Type: Spontaneous
  Country: US (occurrence: US)
  Receive Date: 20131118
  Receipt Date: 20140106
  Transmission Date: 20141002
  Serious: Yes (Death, Hospitalization, Other)
  Sender: FDA-Public Use
  Company Number: US-BAXTER-2013BAX045015

PATIENT
  Age: 75 Year
  Sex: Male

DRUGS (2)
  1. DIANEAL LOW CALCIUM [Suspect]
     Indication: PERITONEAL DIALYSIS
     Route: 033
     Dates: start: 201306, end: 20131108
  2. DIANEAL LOW CALCIUM [Suspect]
     Indication: PERITONEAL DIALYSIS
     Route: 033
     Dates: start: 201306, end: 20131108

REACTIONS (6)
  - Intestinal ischaemia [Fatal]
  - Gastrointestinal necrosis [Fatal]
  - Fall [Recovered/Resolved]
  - Head injury [Recovered/Resolved]
  - Fungal peritonitis [Unknown]
  - Peritonitis bacterial [Recovering/Resolving]
